FAERS Safety Report 7918861 (Version 3)
Quarter: 2012Q4

REPORT INFORMATION
  Report Type: Report from Study
  Country: DE (occurrence: DE)
  Receive Date: 20110428
  Receipt Date: 20121101
  Transmission Date: 20130627
  Serious: Yes (Hospitalization, Other)
  Sender: FDA-Public Use
  Company Number: DE-ABBOTT-11P-062-0721847-00

PATIENT
  Age: 64 None
  Sex: Female
  Weight: 87 kg

DRUGS (9)
  1. HUMIRA [Suspect]
     Indication: PSORIATIC ARTHROPATHY
     Route: 058
     Dates: start: 20090715
  2. ANTITHROMBOTIC DRUG [Concomitant]
     Indication: THROMBOSIS PROPHYLAXIS
     Dates: start: 2011
  3. EUTHYROX [Concomitant]
     Indication: HYPOTHYROIDISM
     Dosage: 50 mcg od
     Route: 048
  4. AMITRIPTYLIN [Concomitant]
     Indication: DEPRESSION
     Dosage: 25 mg od
     Route: 048
  5. HYDROCHLOROTHIAZIDE [Concomitant]
     Indication: HYPERTENSION
     Dosage: 25 mg od
     Route: 048
  6. METHOTREXATE [Concomitant]
     Indication: PSORIATIC ARTHROPATHY
  7. CORTISONE [Concomitant]
     Indication: PSORIATIC ARTHROPATHY
  8. PANTOPRAZOL [Concomitant]
     Indication: PRODUCT USED FOR UNKNOWN INDICATION
  9. L-THYROXIN [Concomitant]
     Indication: GOITRE

REACTIONS (3)
  - Rheumatoid arthritis [Recovering/Resolving]
  - Foot deformity [Unknown]
  - Unevaluable event [Recovering/Resolving]
